FAERS Safety Report 25098397 (Version 1)
Quarter: 2025Q1

REPORT INFORMATION
  Report Type: Spontaneous
  Country: AU (occurrence: AU)
  Receive Date: 20250320
  Receipt Date: 20250320
  Transmission Date: 20250408
  Serious: Yes (Other)
  Sender: TAKEDA
  Company Number: AU-JNJFOC-20250322356

PATIENT
  Sex: Female

DRUGS (3)
  1. BORTEZOMIB [Suspect]
     Active Substance: BORTEZOMIB
     Indication: Plasma cell myeloma
  2. DARZALEX [Suspect]
     Active Substance: DARATUMUMAB
     Indication: Plasma cell myeloma
     Dosage: UNK, Q2WEEKS
  3. DARZALEX [Suspect]
     Active Substance: DARATUMUMAB
     Dosage: UNK, MONTHLY

REACTIONS (3)
  - Plasma cell myeloma [Unknown]
  - Cardiac disorder [Unknown]
  - Off label use [Unknown]
